FAERS Safety Report 6955257-X (Version None)
Quarter: 2010Q3

REPORT INFORMATION
  Report Type: 
  Country: None (occurrence: None)
  Receive Date: 20100830
  Receipt Date: 20100820
  Transmission Date: 20110219
  Serious: Yes (Other)
  Sender: FDA-Public Use
  Company Number: JP-ASTRAZENECA-2010SE29318

PATIENT
  Age: 81 Year
  Sex: Male

DRUGS (2)
  1. AMIAS [Suspect]
     Indication: HYPERTENSION
     Route: 048
     Dates: start: 20090709, end: 20091103
  2. LANTUS [Concomitant]
     Indication: DIABETES MELLITUS
     Dosage: EVERY DAY.
     Route: 065

REACTIONS (3)
  - DIPLOPIA [None]
  - HETEROPHORIA [None]
  - IMPAIRED DRIVING ABILITY [None]
